FAERS Safety Report 6160952-9 (Version None)
Quarter: 2009Q2

REPORT INFORMATION
  Report Type: 
  Country: None (occurrence: None)
  Receive Date: 20090420
  Receipt Date: 20070618
  Transmission Date: 20091009
  Serious: Yes (Hospitalization)
  Sender: FDA-Public Use
  Company Number: PHHO2007KR07952

PATIENT
  Sex: Female
  Weight: 59.8 kg

DRUGS (5)
  1. ICL670A ICL+DISTAB [Suspect]
     Indication: IRON OVERLOAD
     Dosage: 1250 MG, QD
     Route: 048
     Dates: start: 20070428, end: 20070506
  2. ICL670A ICL+DISTAB [Suspect]
     Dosage: NO TREATMENT
     Dates: start: 20070507, end: 20070529
  3. ICL670A ICL+DISTAB [Suspect]
     Dosage: 500 MG, QD
     Route: 048
     Dates: start: 20070530, end: 20070530
  4. ICL670A ICL+DISTAB [Suspect]
     Dosage: NO TREATMENT
     Dates: start: 20070531, end: 20070605
  5. ICL670A ICL+DISTAB [Suspect]
     Dosage: 250 MG, QD
     Route: 048
     Dates: start: 20070606, end: 20070606

REACTIONS (8)
  - CHILLS [None]
  - FEBRILE NEUTROPENIA [None]
  - HEADACHE [None]
  - LOCAL SWELLING [None]
  - PRURITUS [None]
  - RASH MORBILLIFORM [None]
  - SWELLING FACE [None]
  - URTICARIA [None]
